FAERS Safety Report 25712339 (Version 1)
Quarter: 2025Q3

REPORT INFORMATION
  Report Type: Spontaneous
  Country: EU (occurrence: EU)
  Receive Date: 20250821
  Receipt Date: 20250821
  Transmission Date: 20251021
  Serious: Yes (Other)
  Sender: ABBVIE
  Company Number: EU-ABBVIE-6421750

PATIENT
  Age: 52 Year
  Sex: Male

DRUGS (1)
  1. VENETOCLAX [Suspect]
     Active Substance: VENETOCLAX
     Indication: Product used for unknown indication
     Route: 048
     Dates: start: 202409

REACTIONS (3)
  - Diffuse large B-cell lymphoma recurrent [Unknown]
  - Allogenic stem cell transplantation [Unknown]
  - CD20 antigen positive [Unknown]

NARRATIVE: CASE EVENT DATE: 20250101
